FAERS Safety Report 9345970 (Version 1)
Quarter: 2013Q2

REPORT INFORMATION
  Report Type: Spontaneous
  Country: US (occurrence: US)
  Receive Date: 20130613
  Receipt Date: 20130613
  Transmission Date: 20140414
  Serious: Yes (Other)
  Sender: FDA-Public Use
  Company Number: US-ASTELLAS-2013US005952

PATIENT
  Sex: Female
  Weight: 155 kg

DRUGS (1)
  1. MYRBETRIQ [Suspect]
     Indication: HYPERTONIC BLADDER
     Dosage: 25 MG, UID/QD
     Route: 048
     Dates: start: 201304

REACTIONS (3)
  - Cerebrovascular accident [Unknown]
  - Diabetes mellitus [Unknown]
  - Hypertension [Unknown]
